FAERS Safety Report 18446479 (Version 1)
Quarter: 2020Q4

REPORT INFORMATION
  Report Type: Spontaneous
  Country: US (occurrence: US)
  Receive Date: 20201030
  Receipt Date: 20201030
  Transmission Date: 20210114
  Serious: No
  Sender: FDA-Public Use
  Company Number: US-ASTRAZENECA-2020SF30587

PATIENT
  Sex: Female

DRUGS (2)
  1. SYMBICORT [Suspect]
     Active Substance: BUDESONIDE\FORMOTEROL FUMARATE DIHYDRATE
     Dosage: 80/4.5MCG, TWICE DAILY, TWO PUFFS IN THE AM AND TWO PUFFS IN THE PM
     Route: 055
  2. SYMBICORT [Suspect]
     Active Substance: BUDESONIDE\FORMOTEROL FUMARATE DIHYDRATE
     Dosage: 80/4.5MCG, TWO PUFFS ONCE A DAY
     Route: 055

REACTIONS (5)
  - Device malfunction [Unknown]
  - Wrong technique in device usage process [Unknown]
  - Memory impairment [Unknown]
  - Intentional device misuse [Unknown]
  - Intentional product misuse [Unknown]
